FAERS Safety Report 4848117-1 (Version None)
Quarter: 2005Q4

REPORT INFORMATION
  Report Type: 
  Country: None (occurrence: None)
  Receive Date: 20051206
  Receipt Date: 20051206
  Transmission Date: 20060501
  Serious: No
  Sender: FDA-Public Use
  Company Number: None

PATIENT
  Age: 5 Year
  Sex: Female
  Weight: 31.7518 kg

DRUGS (1)
  1. ALBUTEROL [Suspect]
     Indication: BRONCHIAL HYPERACTIVITY
     Dosage: 0.083% Q 6-8H
     Dates: start: 20050927

REACTIONS (3)
  - HYPERHIDROSIS [None]
  - LETHARGY [None]
  - TACHYCARDIA [None]
